FAERS Safety Report 17585980 (Version 1)
Quarter: 2020Q1

REPORT INFORMATION
  Report Type: Spontaneous
  Country: JP (occurrence: JP)
  Receive Date: 20200326
  Receipt Date: 20200326
  Transmission Date: 20200409
  Serious: Yes (Hospitalization)
  Sender: FDA-Public Use
  Company Number: JP-ASTRAZENECA-2020SE40759

PATIENT
  Age: 40 Year
  Sex: Male

DRUGS (6)
  1. CICLOSPORIN [Interacting]
     Active Substance: CYCLOSPORINE
     Route: 048
  2. CICLOSPORIN [Interacting]
     Active Substance: CYCLOSPORINE
     Route: 048
  3. CRESTOR [Suspect]
     Active Substance: ROSUVASTATIN CALCIUM
     Indication: HYPERLIPIDAEMIA
     Dosage: 2.5MG UNKNOWN
     Route: 048
  4. CICLOSPORIN [Interacting]
     Active Substance: CYCLOSPORINE
     Route: 048
  5. HIRUDOID [Concomitant]
     Active Substance: GLYCOSAMINOGLYCANS
     Dosage: DOSE UNKNOWN
     Route: 062
  6. ANTEBATE:OINTMENT [Concomitant]
     Dosage: DOSE UNKNOWN
     Route: 062

REACTIONS (2)
  - Drug interaction [Unknown]
  - Chronic kidney disease [Unknown]
